FAERS Safety Report 5485313-7 (Version None)
Quarter: 2007Q4

REPORT INFORMATION
  Report Type: 
  Country: None (occurrence: None)
  Receive Date: 20071010
  Receipt Date: 20071010
  Transmission Date: 20080405
  Serious: No
  Sender: FDA-Public Use
  Company Number: None

PATIENT
  Sex: Male
  Weight: 77.1115 kg

DRUGS (1)
  1. ASTELIN [Suspect]
     Indication: RHINITIS ALLERGIC
     Dosage: 1 SPRAY/NOSTRIL  BID  NASAL
     Route: 045
     Dates: start: 20050415, end: 20060108

REACTIONS (3)
  - EXTRASYSTOLES [None]
  - HEART RATE INCREASED [None]
  - PALPITATIONS [None]
